FAERS Safety Report 12694179 (Version 4)
Quarter: 2016Q4

REPORT INFORMATION
  Report Type: Spontaneous
  Country: US (occurrence: US)
  Receive Date: 20160829
  Receipt Date: 20161007
  Transmission Date: 20170207
  Serious: Yes (Hospitalization)
  Sender: FDA-Public Use
  Company Number: US-CELGENEUS-USA-2016085815

PATIENT
  Sex: Male
  Weight: 76.73 kg

DRUGS (1)
  1. REVLIMID [Suspect]
     Active Substance: LENALIDOMIDE
     Indication: PLASMA CELL MYELOMA RECURRENT
     Dosage: 15 MILLIGRAM
     Route: 048
     Dates: start: 20160721

REACTIONS (13)
  - Pneumonia aspiration [Unknown]
  - Diarrhoea [Unknown]
  - Pyrexia [Unknown]
  - Rash pruritic [Unknown]
  - Hypersomnia [Unknown]
  - Nausea [Unknown]
  - Cardiac failure congestive [Unknown]
  - Fatigue [Unknown]
  - Malaise [Unknown]
  - Blood bilirubin increased [Unknown]
  - Cholecystitis [Unknown]
  - Haemoglobin decreased [Unknown]
  - Dehydration [Unknown]

NARRATIVE: CASE EVENT DATE: 2016
